FAERS Safety Report 9303023 (Version 2)
Quarter: 2013Q4

REPORT INFORMATION
  Report Type: Spontaneous
  Country: JP (occurrence: None)
  Receive Date: 20130131
  Receipt Date: 20131223
  Transmission Date: 20140711
  Serious: Yes (Death)
  Sender: FDA-Public Use
  Company Number: EUS-2012-00480

PATIENT
  Age: 44 Year
  Sex: Male
  Weight: 121 kg

DRUGS (2)
  1. ASPARAGINASE (UNSPECIFIED)(ASPARAGINASE) [Suspect]
     Indication: ACUTE LYMPHOCYTIC LEUKAEMIA
     Dosage: GIVEN ON DAYS 20, 22, AND 24 (5,100 KU/DAY)
  2. PREDNISOLONE (PREDNISOLONE) (PREDNISOLONE) [Concomitant]

REACTIONS (6)
  - Hepatitis fulminant [None]
  - Coagulopathy [None]
  - Hepatic encephalopathy [None]
  - Coma hepatic [None]
  - Renal impairment [None]
  - Respiratory disorder [None]
